FAERS Safety Report 21094407 (Version 2)
Quarter: 2022Q3

REPORT INFORMATION
  Report Type: Spontaneous
  Country: US (occurrence: US)
  Receive Date: 20220718
  Receipt Date: 20220809
  Transmission Date: 20221026
  Serious: Yes (Other)
  Sender: FDA-Public Use
  Company Number: US-PFIZER INC-PV202200022293

PATIENT

DRUGS (2)
  1. PAXLOVID [Interacting]
     Active Substance: NIRMATRELVIR\RITONAVIR
     Indication: COVID-19 treatment
     Dosage: UNK
  2. TACROLIMUS [Interacting]
     Active Substance: TACROLIMUS
     Dosage: UNK

REACTIONS (3)
  - Drug interaction [Unknown]
  - Drug level above therapeutic [Unknown]
  - Immunosuppressant drug level increased [Unknown]
